FAERS Safety Report 25285858 (Version 3)
Quarter: 2025Q2

REPORT INFORMATION
  Report Type: Spontaneous
  Country: CN (occurrence: CN)
  Receive Date: 20250509
  Receipt Date: 20250603
  Transmission Date: 20250717
  Serious: Yes (Other)
  Sender: NOVO NORDISK
  Company Number: CN-NOVOPROD-1414290

PATIENT
  Age: 53 Year
  Sex: Male
  Weight: 77.5 kg

DRUGS (7)
  1. NOVOLIN R [Suspect]
     Active Substance: INSULIN HUMAN
     Indication: Type 2 diabetes mellitus
     Dosage: 18 IU, QD (5 IU MORNING, 6 IU NOON, 7 IU NIGHT)
     Dates: start: 2008
  2. DORZAGLIATIN [Concomitant]
     Active Substance: DORZAGLIATIN
     Indication: Product used for unknown indication
     Dosage: 2 DF, QD
  3. INSULIN ICODEC [Suspect]
     Active Substance: INSULIN ICODEC
     Dosage: 70 IU, QW
  4. INSULIN ICODEC [Suspect]
     Active Substance: INSULIN ICODEC
  5. INSULIN ICODEC [Suspect]
     Active Substance: INSULIN ICODEC
     Dosage: 50 IU, QW
  6. INSULIN ICODEC [Suspect]
     Active Substance: INSULIN ICODEC
     Indication: Type 2 diabetes mellitus
     Dates: start: 202412
  7. INSULIN ICODEC [Suspect]
     Active Substance: INSULIN ICODEC

REACTIONS (6)
  - Immunodeficiency [Not Recovered/Not Resolved]
  - Nasopharyngitis [Not Recovered/Not Resolved]
  - Chills [Not Recovered/Not Resolved]
  - Pyrexia [Not Recovered/Not Resolved]
  - Hyperhidrosis [Not Recovered/Not Resolved]
  - Blood glucose decreased [Not Recovered/Not Resolved]

NARRATIVE: CASE EVENT DATE: 20080101
